FAERS Safety Report 8994783 (Version 1)
Quarter: 2012Q4

REPORT INFORMATION
  Report Type: Spontaneous
  Country: US (occurrence: None)
  Receive Date: 20121228
  Receipt Date: 20121228
  Transmission Date: 20130627
  Serious: Yes (Other)
  Sender: FDA-Public Use
  Company Number: None

PATIENT
  Sex: Female
  Weight: 54.43 kg

DRUGS (1)
  1. AMANTADINE [Suspect]
     Indication: PARKINSON^S DISEASE
     Dosage: 100 mg 1 daily orally
     Route: 048

REACTIONS (2)
  - Hallucination, visual [None]
  - Colour blindness [None]
